FAERS Safety Report 11813763 (Version 2)
Quarter: 2016Q1

REPORT INFORMATION
  Report Type: Spontaneous
  Country: FR (occurrence: FR)
  Receive Date: 20151209
  Receipt Date: 20160127
  Transmission Date: 20160525
  Serious: Yes (Other)
  Sender: FDA-Public Use
  Company Number: FR-TEVA-615722ISR

PATIENT
  Sex: Female

DRUGS (4)
  1. DOXORUBICINE [Concomitant]
     Active Substance: DOXORUBICIN
  2. OXYCODONE [Interacting]
     Active Substance: OXYCODONE
     Indication: PAIN
     Route: 042
  3. APREPITANT. [Interacting]
     Active Substance: APREPITANT
  4. PAROXETINE [Suspect]
     Active Substance: PAROXETINE\PAROXETINE HYDROCHLORIDE

REACTIONS (2)
  - Cardio-respiratory arrest [Recovered/Resolved]
  - Drug interaction [Unknown]
